FAERS Safety Report 9418234 (Version 1)
Quarter: 2013Q3

REPORT INFORMATION
  Report Type: Report from Study
  Country: CA (occurrence: CA)
  Receive Date: 20130724
  Receipt Date: 20130724
  Transmission Date: 20140515
  Serious: Yes (Hospitalization)
  Sender: FDA-Public Use
  Company Number: CA-ABBOTT-13P-028-1122593-00

PATIENT
  Sex: Male

DRUGS (1)
  1. LUPRON DEPOT [Suspect]
     Indication: PROSTATE CANCER

REACTIONS (1)
  - Fall [Unknown]
